FAERS Safety Report 6378779-1 (Version None)
Quarter: 2009Q3

REPORT INFORMATION
  Report Type: 
  Country: None (occurrence: None)
  Receive Date: 20090928
  Receipt Date: 20090916
  Transmission Date: 20100115
  Serious: Yes (Death)
  Sender: FDA-Public Use
  Company Number: KR-PFIZER INC-2009270041

PATIENT
  Age: 47 Year

DRUGS (8)
  1. VORICONAZOLE [Suspect]
     Indication: ASPERGILLOSIS
     Dosage: 400 MG, 2X/DAY
     Route: 048
     Dates: start: 20080618, end: 20080618
  2. VORICONAZOLE [Suspect]
     Dosage: 200 MG, 2X/DAY
     Route: 048
     Dates: start: 20080619, end: 20080627
  3. DIPHENYLHYDANTOIN [Concomitant]
     Indication: PROPHYLAXIS
     Dosage: 100 MG, 3X/DAY
     Route: 042
     Dates: start: 20080607
  4. AMINOPHYLLINE [Concomitant]
     Indication: ACUTE RESPIRATORY DISTRESS SYNDROME
     Dosage: 0.3 MG/H, 1X/DAY
     Route: 041
     Dates: start: 20080603
  5. AMBROXOL [Concomitant]
     Indication: ACUTE RESPIRATORY DISTRESS SYNDROME
     Dosage: 15 MG, 2X/DAY
     Route: 042
     Dates: start: 20080515
  6. ITOPRIDE [Concomitant]
     Indication: ILEUS
     Dosage: 50 MG, 3X/DAY
     Route: 048
     Dates: start: 20080615
  7. ERYTHROMYCIN [Concomitant]
     Indication: ILEUS
     Dosage: 250 MG, 4X/DAY
     Route: 048
     Dates: start: 20080623
  8. SULFAMETHOXAZOLE AND TRIMETHOPRIM [Concomitant]
     Indication: WOUND INFECTION
     Dosage: 960 MG, 2X/DAY
     Route: 048
     Dates: start: 20080614

REACTIONS (1)
  - DEATH [None]
